FAERS Safety Report 20535812 (Version 1)
Quarter: 2022Q1

REPORT INFORMATION
  Report Type: Spontaneous
  Country: IN (occurrence: IN)
  Receive Date: 20220302
  Receipt Date: 20220302
  Transmission Date: 20220423
  Serious: Yes (Hospitalization)
  Sender: FDA-Public Use
  Company Number: IN-JNJFOC-20211215227

PATIENT

DRUGS (1)
  1. ULTRACET [Suspect]
     Active Substance: ACETAMINOPHEN\TRAMADOL HYDROCHLORIDE
     Indication: Myalgia
     Route: 065
     Dates: start: 202111

REACTIONS (1)
  - Ileus paralytic [Unknown]

NARRATIVE: CASE EVENT DATE: 20210101
